FAERS Safety Report 20349267 (Version 2)
Quarter: 2022Q1

REPORT INFORMATION
  Report Type: Other
  Country: US (occurrence: None)
  Receive Date: 20220119
  Receipt Date: 20220121
  Transmission Date: 20220424
  Serious: Yes (Other)
  Sender: FDA-Public Use
  Company Number: US-ROCHE-3000588

PATIENT
  Sex: Female

DRUGS (3)
  1. OCREVUS [Suspect]
     Active Substance: OCRELIZUMAB
     Indication: Multiple sclerosis
     Dosage: INFUSE 600MG INTRAVENOUSLY EVERY 6 MONTH(S). ?DATE OF TREATMENT: 29/JAN/2018 30/JUL/2021
     Route: 042
  2. AMPYRA [Concomitant]
     Active Substance: DALFAMPRIDINE
  3. OXCARBAZEPINE [Concomitant]
     Active Substance: OXCARBAZEPINE

REACTIONS (2)
  - Hip fracture [Unknown]
  - Lower limb fracture [Unknown]
